FAERS Safety Report 7010819 (Version 2)
Quarter: 2014Q1

REPORT INFORMATION
  Report Type: Spontaneous
  Country: US (occurrence: None)
  Receive Date: 20090526
  Receipt Date: 20140123
  Transmission Date: 20141002
  Serious: Yes (Other)
  Sender: FDA-Public Use
  Company Number: 2009S1004060

PATIENT
  Age: 70 Year
  Sex: Male
  Weight: 75.3 kg

DRUGS (5)
  1. SODIUM PHOSPHATE, DIBASIC\SODIUM PHOSPHATE, MONOBASIC, ANHYDROUS [Suspect]
     Dosage: PO
     Route: 048
     Dates: start: 20050712
  2. ZOCOR (SIMVASTATIN) [Concomitant]
  3. AVANDIA (ROSIGLITAZONE MALEATE) [Concomitant]
  4. DILTIAZEM (DILTIAZEM) [Concomitant]
  5. COZAAR (LOSARTAN POTASSIUM) [Concomitant]

REACTIONS (3)
  - Renal failure [None]
  - Dialysis [None]
  - Anaemia of chronic disease [None]
